FAERS Safety Report 11106276 (Version 1)
Quarter: 2015Q2

REPORT INFORMATION
  Report Type: Spontaneous
  Country: IT (occurrence: IT)
  Receive Date: 20150512
  Receipt Date: 20150512
  Transmission Date: 20150821
  Serious: Yes (Hospitalization)
  Sender: FDA-Public Use
  Company Number: IT-SA-2015SA061292

PATIENT
  Age: 73 Year
  Sex: Female

DRUGS (3)
  1. NOVORAPID [Suspect]
     Active Substance: INSULIN ASPART
     Indication: TYPE 1 DIABETES MELLITUS
     Dosage: DOSE: 20 IU (LESS THAN 100) DAILY
     Route: 058
  2. FLEXPEN [Concomitant]
     Active Substance: UNSPECIFIED INGREDIENT
     Indication: TYPE 1 DIABETES MELLITUS
  3. LANTUS [Suspect]
     Active Substance: INSULIN GLARGINE
     Indication: TYPE 1 DIABETES MELLITUS
     Dosage: DOSAGE: 12 IU (LESS THAN 100) DAILY
     Route: 058

REACTIONS (6)
  - Fall [Unknown]
  - Palpitations [Recovered/Resolved]
  - Hypoglycaemia [Recovered/Resolved]
  - Injury [Unknown]
  - Contusion [Unknown]
  - Tachycardia [Recovered/Resolved]

NARRATIVE: CASE EVENT DATE: 20120622
